FAERS Safety Report 8032911-2 (Version None)
Quarter: 2011Q4

REPORT INFORMATION
  Report Type: 
  Country: None (occurrence: None)
  Receive Date: 20111229
  Receipt Date: 20111216
  Transmission Date: 20120403
  Serious: Yes (Other)
  Sender: FDA-Public Use
  Company Number: 2011SP054526

PATIENT
  Age: 40 Year
  Sex: Female
  Weight: 87.9978 kg

DRUGS (10)
  1. RIBAVIRIN [Suspect]
     Indication: PRODUCT USED FOR UNKNOWN INDICATION
     Dosage: 200 MG;
     Dates: start: 20111025
  2. PEGASYS [Suspect]
     Indication: PRODUCT USED FOR UNKNOWN INDICATION
     Dates: start: 20111025
  3. FISH OIL [Concomitant]
  4. CLONAZEPAM [Concomitant]
  5. ZOFRAN [Concomitant]
  6. VICTRELIS [Suspect]
     Indication: PRODUCT USED FOR UNKNOWN INDICATION
     Dosage: 200 MG; Q8H; PO
     Route: 048
     Dates: start: 20111025
  7. LAMOTRIGINE [Concomitant]
  8. MELATONIN [Concomitant]
  9. NEXIUM [Concomitant]
  10. HYDROCODONE BITARTRATE AND ACETAMINOPHEN [Concomitant]

REACTIONS (9)
  - BRONCHITIS [None]
  - ERYTHEMA [None]
  - DYSPNOEA [None]
  - BLISTER [None]
  - NAUSEA [None]
  - VOMITING [None]
  - SKIN ULCER [None]
  - ABDOMINAL PAIN [None]
  - RASH [None]
